FAERS Safety Report 25153319 (Version 3)
Quarter: 2025Q2

REPORT INFORMATION
  Report Type: Report from Study
  Country: IT (occurrence: IT)
  Receive Date: 20250403
  Receipt Date: 20250513
  Transmission Date: 20250717
  Serious: Yes (Hospitalization)
  Sender: TEVA
  Company Number: None

PATIENT
  Age: 7 Year
  Sex: Male
  Weight: 22 kg

DRUGS (4)
  1. ETOPOSIDE [Suspect]
     Active Substance: ETOPOSIDE
     Indication: Brain neoplasm
     Route: 042
     Dates: start: 20240124
  2. METHOTREXATE [Suspect]
     Active Substance: METHOTREXATE
     Indication: Brain neoplasm
     Route: 042
     Dates: start: 20250212
  3. VINCRISTINE [Suspect]
     Active Substance: VINCRISTINE
     Indication: Brain neoplasm
     Route: 042
     Dates: start: 20250212
  4. CARBOPLATIN [Suspect]
     Active Substance: CARBOPLATIN
     Indication: Brain neoplasm
     Route: 042
     Dates: start: 20250124

REACTIONS (2)
  - Hypertransaminasaemia [Recovered/Resolved]
  - Stomatitis [Recovered/Resolved]

NARRATIVE: CASE EVENT DATE: 20250219
